FAERS Safety Report 4865015-8 (Version None)
Quarter: 2005Q4

REPORT INFORMATION
  Report Type: 
  Country: None (occurrence: None)
  Receive Date: 20051223
  Receipt Date: 20050908
  Transmission Date: 20060501
  Serious: Yes (Other)
  Sender: FDA-Public Use
  Company Number: PHHO2005JP14352

PATIENT
  Age: 77 Year
  Sex: Female
  Weight: 44 kg

DRUGS (9)
  1. DIOVAN [Suspect]
     Indication: HYPERTENSION
     Dosage: 80 MG, QD
     Route: 048
     Dates: start: 20021224, end: 20040804
  2. GLUCOBAY [Concomitant]
     Indication: DIABETES MELLITUS
  3. BUFFERIN [Concomitant]
     Indication: ANGINA PECTORIS
  4. HERBESSOR R [Concomitant]
     Indication: ANGINA PECTORIS
  5. FERROMIA [Concomitant]
     Indication: IRON DEFICIENCY ANAEMIA
  6. LASIX [Concomitant]
     Indication: MITRAL VALVE INCOMPETENCE
  7. ISOSORBIDE MONONITRATE [Concomitant]
     Indication: ANGINA PECTORIS
  8. GLIMICRON [Concomitant]
     Indication: DIABETES MELLITUS
  9. PROTECADIN [Concomitant]
     Indication: GASTRIC ULCER

REACTIONS (4)
  - ANGINA PECTORIS [None]
  - HYPERKALAEMIA [None]
  - IRON DEFICIENCY ANAEMIA [None]
  - MITRAL VALVE INCOMPETENCE [None]
